FAERS Safety Report 18867173 (Version 1)
Quarter: 2021Q1

REPORT INFORMATION
  Report Type: Spontaneous
  Country: ES (occurrence: ES)
  Receive Date: 20210209
  Receipt Date: 20210209
  Transmission Date: 20210420
  Serious: Yes (Other)
  Sender: FDA-Public Use
  Company Number: ES-MYLANLABS-2021M1007263

PATIENT
  Age: 84 Year
  Sex: Female

DRUGS (3)
  1. ALTEPLASA [Interacting]
     Active Substance: ALTEPLASE
     Indication: ISCHAEMIC STROKE
     Dosage: 8 MILLIGRAM, TOTAL
     Route: 042
     Dates: start: 20200201, end: 20200201
  2. ENALAPRIL [Suspect]
     Active Substance: ENALAPRIL
     Indication: HYPERTENSION
     Dosage: 5 MILLIGRAM, QD
     Route: 048
     Dates: start: 2015
  3. AMLODIPINO                         /00972401/ [Concomitant]
     Active Substance: AMLODIPINE BESYLATE
     Dosage: 5 MILLIGRAM, QD
     Route: 048
     Dates: start: 2015

REACTIONS (3)
  - Drug interaction [Unknown]
  - Erythema [Recovered/Resolved]
  - Angioedema [Recovered/Resolved]

NARRATIVE: CASE EVENT DATE: 20200201
